FAERS Safety Report 16664537 (Version 6)
Quarter: 2022Q2

REPORT INFORMATION
  Report Type: Report from Study
  Country: US (occurrence: US)
  Receive Date: 20190802
  Receipt Date: 20220401
  Transmission Date: 20220721
  Serious: Yes (Hospitalization, Other)
  Sender: FDA-Public Use
  Company Number: US-TESAROUBC-2019-TSO02698-US

PATIENT
  Age: 89 Year
  Sex: Female
  Weight: 46.259 kg

DRUGS (26)
  1. NIRAPARIB [Suspect]
     Active Substance: NIRAPARIB
     Indication: Ovarian cancer
     Dosage: 200 MG
     Dates: start: 20190627, end: 20190720
  2. NIRAPARIB [Suspect]
     Active Substance: NIRAPARIB
     Dosage: 100 MG
     Dates: start: 20190808
  3. CARBOPLATIN [Suspect]
     Active Substance: CARBOPLATIN
     Indication: Ovarian cancer
     Dosage: 6 AUC
     Route: 042
     Dates: start: 20190122, end: 20190122
  4. CARBOPLATIN [Suspect]
     Active Substance: CARBOPLATIN
     Dosage: 415 AUC
     Route: 042
     Dates: start: 20190606, end: 20190606
  5. PACLITAXEL [Suspect]
     Active Substance: PACLITAXEL
     Indication: Ovarian cancer
     Dosage: 257 MG
     Route: 042
     Dates: start: 20190122, end: 20190122
  6. PACLITAXEL [Suspect]
     Active Substance: PACLITAXEL
     Dosage: 260 MG
     Route: 042
     Dates: start: 20190606, end: 20190606
  7. BEVACIZUMAB [Suspect]
     Active Substance: BEVACIZUMAB
     Indication: Ovarian cancer
     Dosage: 7.5 MG/KG
     Route: 042
     Dates: start: 20190122, end: 20190122
  8. BEVACIZUMAB [Suspect]
     Active Substance: BEVACIZUMAB
     Dosage: 351 MG/KG
     Route: 042
     Dates: start: 20190718, end: 20190718
  9. SIMVASTATIN [Suspect]
     Active Substance: SIMVASTATIN
     Indication: Product used for unknown indication
     Dosage: UNK
     Route: 065
     Dates: start: 20190627
  10. ASCORBIC ACID [Concomitant]
     Active Substance: ASCORBIC ACID
     Indication: Product used for unknown indication
     Dosage: 1000 MG
  11. LIPITOR [Concomitant]
     Active Substance: ATORVASTATIN CALCIUM
     Indication: Low density lipoprotein
     Dosage: 40 MG, UNK
     Route: 048
     Dates: start: 20190722
  12. BIOTIN [Concomitant]
     Active Substance: BIOTIN
     Indication: Product used for unknown indication
     Dosage: 300 MCG TAB
     Route: 048
  13. CALCIUM CARBONATE [Concomitant]
     Active Substance: CALCIUM CARBONATE
     Indication: Product used for unknown indication
     Dosage: CALCIUM 600
     Route: 048
  14. COENZYME Q10 [Concomitant]
     Active Substance: DIETARY SUPPLEMENT\UBIDECARENONE
     Indication: Product used for unknown indication
     Dosage: 30 MG, QD
     Route: 048
  15. COLACE [Concomitant]
     Active Substance: DOCUSATE SODIUM
     Indication: Product used for unknown indication
     Dosage: 100 MG, QD
     Route: 048
  16. SENNA LEAF TEA [Concomitant]
     Indication: Constipation
     Dosage: 1 PACKET BY MOUTH EVERY EVENING
     Route: 048
  17. CHONDROITIN SULFATE (BOVINE)\GLUCOSAMINE HYDROCHLORIDE [Concomitant]
     Active Substance: CHONDROITIN SULFATE (BOVINE)\GLUCOSAMINE HYDROCHLORIDE
     Indication: Product used for unknown indication
     Dosage: 1 DF, QD
     Route: 048
  18. EMLA [Concomitant]
     Active Substance: LIDOCAINE\PRILOCAINE
     Indication: Product used for unknown indication
     Dosage: APPLY TO PORT AREA BEFORE PORT USE
  19. ECOTRIN [Concomitant]
     Active Substance: ASPIRIN
     Indication: Low density lipoprotein
     Dosage: 81 MG, QD
     Route: 048
     Dates: start: 20190722
  20. CHLORPHENIRAMINE MALEATE [Concomitant]
     Active Substance: CHLORPHENIRAMINE MALEATE
     Dosage: 1 DF, QD
     Route: 048
  21. FISH OIL (OMEGA - 3 FATTY ACIDS) [Concomitant]
     Dosage: 1 DF, QD (300-1000 MG)
     Route: 048
  22. LUTEIN [Concomitant]
     Active Substance: LUTEIN
     Dosage: 6 MG, QD
     Route: 048
  23. DOCETAXEL [Concomitant]
     Active Substance: DOCETAXEL
  24. CISPLATIN [Concomitant]
     Active Substance: CISPLATIN
  25. KEPPRA [Concomitant]
     Active Substance: LEVETIRACETAM
     Route: 042
  26. VIMPAT [Concomitant]
     Active Substance: LACOSAMIDE

REACTIONS (2)
  - Hypertension [Recovered/Resolved]
  - Transient ischaemic attack [Recovered/Resolved]

NARRATIVE: CASE EVENT DATE: 20190724
